FAERS Safety Report 5405541-6 (Version None)
Quarter: 2007Q3

REPORT INFORMATION
  Report Type: 
  Country: None (occurrence: None)
  Receive Date: 20070803
  Receipt Date: 20070726
  Transmission Date: 20080115
  Serious: Yes (Other)
  Sender: FDA-Public Use
  Company Number: US-PFIZER INC-2007062667

PATIENT
  Sex: Female
  Weight: 52.3 kg

DRUGS (8)
  1. LYRICA [Suspect]
     Indication: NEURALGIA
     Dates: start: 20070725, end: 20070725
  2. NORVASC [Concomitant]
  3. CALCIUM CHLORIDE [Concomitant]
  4. MULTIVITAMIN [Concomitant]
  5. TOPROL-XL [Concomitant]
  6. DYAZIDE [Concomitant]
  7. POTASSIUM CHLORIDE [Concomitant]
  8. ANTIDEPRESSANTS [Concomitant]

REACTIONS (3)
  - BEDRIDDEN [None]
  - NAUSEA [None]
  - SOMNOLENCE [None]
